FAERS Safety Report 23074923 (Version 1)
Quarter: 2023Q4

REPORT INFORMATION
  Report Type: Spontaneous
  Country: US (occurrence: None)
  Receive Date: 20231017
  Receipt Date: 20231017
  Transmission Date: 20240110
  Serious: Yes (Disabling)
  Sender: FDA-Public Use
  Company Number: US-ROCHE-3436430

PATIENT
  Sex: Female

DRUGS (1)
  1. VABYSMO [Suspect]
     Active Substance: FARICIMAB\FARICIMAB-SVOA
     Indication: Neovascular age-related macular degeneration
     Dosage: INJECTION IN RIGHT EYE
     Route: 050

REACTIONS (3)
  - Off label use [Unknown]
  - Blindness unilateral [Not Recovered/Not Resolved]
  - Visual acuity reduced [Not Recovered/Not Resolved]
